FAERS Safety Report 6538974-5 (Version None)
Quarter: 2010Q1

REPORT INFORMATION
  Report Type: 
  Country: None (occurrence: None)
  Receive Date: 20100114
  Receipt Date: 20100114
  Transmission Date: 20100710
  Serious: No
  Sender: FDA-Public Use
  Company Number: None

PATIENT
  Age: 28 Year
  Sex: Male
  Weight: 92.9874 kg

DRUGS (3)
  1. ZICAM COLD REMEDY NASAL GEL UNK -DISCARDED PRODUCT- ZICAM [Suspect]
     Indication: NASAL CONGESTION
     Dosage: ONE SPRAY 1-2X DAILY NASAL
     Route: 045
     Dates: start: 20090115, end: 20090119
  2. ZICAM COLD REMEDY NASAL GEL UNK -DISCARDED PRODUCT- ZICAM [Suspect]
     Indication: NASOPHARYNGITIS
     Dosage: ONE SPRAY 1-2X DAILY NASAL
     Route: 045
     Dates: start: 20090115, end: 20090119
  3. ZICAM COLD REMEDY NASAL GEL UNK -DISCARDED PRODUCT- ZICAM [Suspect]
     Indication: SINUS HEADACHE
     Dosage: ONE SPRAY 1-2X DAILY NASAL
     Route: 045
     Dates: start: 20090115, end: 20090119

REACTIONS (4)
  - APPLICATION SITE PAIN [None]
  - DRUG EFFECT DECREASED [None]
  - PAROSMIA [None]
  - PRODUCT QUALITY ISSUE [None]
